FAERS Safety Report 5731776-9 (Version None)
Quarter: 2008Q2

REPORT INFORMATION
  Report Type: 
  Country: None (occurrence: None)
  Receive Date: 20080506
  Receipt Date: 20080506
  Transmission Date: 20081010
  Serious: Yes (Hospitalization)
  Sender: FDA-Public Use
  Company Number: None

PATIENT
  Sex: Female
  Weight: 45.6 kg

DRUGS (10)
  1. BORTEZOMIB [Suspect]
     Indication: ACUTE LYMPHOCYTIC LEUKAEMIA
     Dosage: 1.3MG/M2/DAY DAYS 1, 4, 8, 11 IV
     Route: 042
     Dates: start: 20080226, end: 20080307
  2. FLUCONAZOLE [Concomitant]
  3. NORETHINDRONE [Concomitant]
  4. CETIRIZINE HCL [Concomitant]
  5. ESOMEPRAZOLE [Concomitant]
  6. LEVOFLOXACIN [Concomitant]
  7. ACETAMINOPHEN [Concomitant]
  8. DIPHENHYDRAMINE HCL [Concomitant]
  9. BACTRIM [Concomitant]
  10. ACYCLOVIR SODIUM [Concomitant]

REACTIONS (3)
  - ALPHA HAEMOLYTIC STREPTOCOCCAL INFECTION [None]
  - BACTERAEMIA [None]
  - HERPES SIMPLEX [None]
